FAERS Safety Report 7241121-8 (Version None)
Quarter: 2011Q1

REPORT INFORMATION
  Report Type: 
  Country: None (occurrence: None)
  Receive Date: 20110120
  Receipt Date: 20110120
  Transmission Date: 20110831
  Serious: Yes (Hospitalization)
  Sender: FDA-Public Use
  Company Number: None

PATIENT
  Age: 39 Year
  Sex: Female
  Weight: 49.4421 kg

DRUGS (7)
  1. ADRIAMYCIN PFS [Suspect]
     Indication: DIFFUSE LARGE B-CELL LYMPHOMA
     Dosage: 73MG EVERY 15 DAYS IV BOLUS
     Route: 040
     Dates: start: 20110106, end: 20110106
  2. ADRIAMYCIN PFS [Suspect]
     Indication: NON-HODGKIN'S LYMPHOMA
     Dosage: 73MG EVERY 15 DAYS IV BOLUS
     Route: 040
     Dates: start: 20110106, end: 20110106
  3. KYTRIL [Concomitant]
  4. CYTOXAN [Suspect]
     Dosage: 1088MG EVERY 15 DAYS IV DRIP
     Route: 041
  5. TYLENOL-500 [Concomitant]
  6. PEPCID [Concomitant]
  7. BENADRYL [Concomitant]

REACTIONS (4)
  - MUCOSAL INFLAMMATION [None]
  - ORAL CANDIDIASIS [None]
  - HYPOPHAGIA [None]
  - NAUSEA [None]
